FAERS Safety Report 24679984 (Version 1)
Quarter: 2024Q4

REPORT INFORMATION
  Report Type: Report from Study
  Country: ZA (occurrence: ZA)
  Receive Date: 20241129
  Receipt Date: 20241129
  Transmission Date: 20250115
  Serious: Yes (Death, Other)
  Sender: ALEXION PHARMACEUTICALS
  Company Number: ZA-AstraZeneca-CH-00752923A

PATIENT
  Age: 91 Year

DRUGS (8)
  1. DAPAGLIFLOZIN [Suspect]
     Active Substance: DAPAGLIFLOZIN
     Indication: Diabetes mellitus
     Dosage: 10 MILLIGRAM, UNK
  2. QUETIAPINE [Concomitant]
     Active Substance: QUETIAPINE
     Indication: Mental disorder
     Dosage: 25 MILLIGRAM
  3. SIMVASTATIN [Concomitant]
     Active Substance: SIMVASTATIN
     Indication: Blood cholesterol abnormal
     Dosage: 20 MILLIGRAM
  4. LEVOTHYROXINE [Concomitant]
     Active Substance: LEVOTHYROXINE
     Indication: Hypothyroidism
     Dosage: 100 MICROGRAM
  5. Spiractin [Concomitant]
     Indication: Hypertension
     Dosage: 25 MILLIGRAM
  6. METFORMIN HYDROCHLORIDE [Concomitant]
     Active Substance: METFORMIN HYDROCHLORIDE
     Indication: Diabetes mellitus
     Dosage: 500 MILLIGRAM
  7. MIRABEGRON [Concomitant]
     Active Substance: MIRABEGRON
     Indication: Bladder disorder
     Dosage: 50 MILLIGRAM
  8. AMITRIPTYLINE [Concomitant]
     Active Substance: AMITRIPTYLINE
     Indication: Depression
     Dosage: 25 MILLIGRAM

REACTIONS (1)
  - Death [Fatal]
